FAERS Safety Report 9144299 (Version 1)
Quarter: 2013Q1

REPORT INFORMATION
  Report Type: Spontaneous
  Country: US (occurrence: US)
  Receive Date: 20130306
  Receipt Date: 20130306
  Transmission Date: 20140127
  Serious: Yes (Other)
  Sender: FDA-Public Use
  Company Number: US-ROCHE-1193816

PATIENT
  Age: 31 None
  Sex: Female
  Weight: 95.34 kg

DRUGS (1)
  1. ERIVEDGE [Suspect]
     Indication: BASAL CELL CARCINOMA
     Route: 048
     Dates: start: 201202

REACTIONS (2)
  - Dysfunctional uterine bleeding [Recovered/Resolved]
  - Amenorrhoea [Recovered/Resolved]
